FAERS Safety Report 9047457 (Version 2)
Quarter: 2013Q1

REPORT INFORMATION
  Report Type: Report from Study
  Country: US (occurrence: US)
  Receive Date: 20130201
  Receipt Date: 20130215
  Transmission Date: 20140127
  Serious: Yes (Hospitalization)
  Sender: FDA-Public Use
  Company Number: US-B.I. PHARMACEUTICALS,INC./RIDGEFIELD-2013-BI-02375BI

PATIENT
  Age: 74 None
  Sex: Male
  Weight: 93 kg

DRUGS (9)
  1. FLOMAX CAPSULES [Suspect]
     Indication: URINARY TRACT DISORDER
     Dosage: 0.4 MG
     Route: 048
     Dates: start: 20121214, end: 20121221
  2. SYNTHROID [Suspect]
     Indication: HYPOTHYROIDISM
     Dosage: 125 MCG
     Route: 048
     Dates: start: 2008, end: 20130104
  3. VASOTEC [Concomitant]
     Indication: HYPERTENSION
     Dosage: 5 MG
     Route: 048
     Dates: start: 2009
  4. METOPROLOL TARTRATE [Concomitant]
     Indication: HYPERTENSION
     Dosage: 25 MG
     Route: 048
     Dates: start: 2009, end: 20130206
  5. VICTOZA PEN [Concomitant]
     Indication: TYPE 2 DIABETES MELLITUS
     Dosage: 1.8 MG
     Route: 058
     Dates: start: 2010
  6. VALIUM [Concomitant]
     Indication: ANXIETY
     Route: 048
  7. SUBOXONE [Concomitant]
     Indication: ARTHRITIS
     Route: 060
  8. MAGNESIUM OXIDE [Concomitant]
     Indication: MULTIPLE ALLERGIES
     Dosage: 10 MG
  9. MONTELUKAST [Concomitant]
     Indication: MULTIPLE ALLERGIES
     Dosage: 10 MG

REACTIONS (2)
  - Atrial flutter [Recovered/Resolved]
  - Respiratory tract infection [Recovered/Resolved]
